FAERS Safety Report 24054259 (Version 2)
Quarter: 2024Q3

REPORT INFORMATION
  Report Type: Spontaneous
  Country: IL (occurrence: IL)
  Receive Date: 20240705
  Receipt Date: 20240911
  Transmission Date: 20241016
  Serious: Yes (Other)
  Sender: NOVARTIS
  Company Number: IL-002147023-NVSC2024IL139093

PATIENT
  Sex: Female

DRUGS (1)
  1. COSENTYX [Suspect]
     Active Substance: SECUKINUMAB
     Indication: Psoriasis
     Dosage: UNK (ABOUT 4 TO 5 MONTHS)
     Route: 065

REACTIONS (1)
  - Lung carcinoma cell type unspecified recurrent [Unknown]

NARRATIVE: CASE EVENT DATE: 20231201
